FAERS Safety Report 23613182 (Version 1)
Quarter: 2024Q1

REPORT INFORMATION
  Report Type: Report from Study
  Country: US (occurrence: US)
  Receive Date: 20240308
  Receipt Date: 20240308
  Transmission Date: 20240410
  Serious: Yes (Other)
  Sender: FDA-Public Use
  Company Number: US-JAZZ-2022-US-012154

PATIENT
  Sex: Female

DRUGS (13)
  1. XYREM [Suspect]
     Active Substance: SODIUM OXYBATE
     Indication: Narcolepsy
     Dosage: UNK
     Dates: start: 2018
  2. XYREM [Suspect]
     Active Substance: SODIUM OXYBATE
     Indication: Cataplexy
  3. XYREM [Suspect]
     Active Substance: SODIUM OXYBATE
     Indication: Somnolence
  4. CLARITHROMYCIN [Concomitant]
     Active Substance: CLARITHROMYCIN
     Dosage: QD, REDITAB
     Dates: start: 20121001
  5. PROBIOTIC BLEND [Concomitant]
     Dosage: QD
     Dates: start: 20170401
  6. FLONASE ALLERGY RELIEF [Concomitant]
     Active Substance: FLUTICASONE PROPIONATE
     Dosage: OTH
     Dates: start: 20131001
  7. WARFARIN SODIUM [Concomitant]
     Active Substance: WARFARIN SODIUM
     Dosage: QD
     Dates: start: 20111001
  8. SINGULAIR [Concomitant]
     Active Substance: MONTELUKAST SODIUM
     Dosage: QD
     Dates: start: 20131001
  9. MINOCYCLINE [Concomitant]
     Active Substance: MINOCYCLINE HYDROCHLORIDE
     Dosage: QD
     Dates: start: 20161001
  10. BUTALBITAL, ACETAMINOPHEN, AND CAFFEINE [Concomitant]
     Active Substance: ACETAMINOPHEN\BUTALBITAL\CAFFEINE
     Dosage: CP, OTH
     Dates: start: 20131001
  11. BENADRYL ALLERGY RELIEF [Concomitant]
     Dosage: ULTRATB
     Dates: start: 20190414
  12. MULTIVITAMIN IRON [Concomitant]
     Dosage: UNK
     Dates: start: 20190421
  13. XANAX [Concomitant]
     Active Substance: ALPRAZOLAM
     Dosage: UNK
     Dates: start: 20190419

REACTIONS (2)
  - Hyperthyroidism [Unknown]
  - Anxiety [Recovered/Resolved]
